FAERS Safety Report 6697809-0 (Version None)
Quarter: 2010Q2

REPORT INFORMATION
  Report Type: 
  Country: None (occurrence: None)
  Receive Date: 20100423
  Receipt Date: 20100407
  Transmission Date: 20101027
  Serious: Yes (Hospitalization)
  Sender: FDA-Public Use
  Company Number: JP-001807

PATIENT
  Age: 39 Year
  Sex: Female

DRUGS (1)
  1. HMG /01277604/ (HMG) (NOT SPECIFIED) [Suspect]
     Indication: OVULATION INDUCTION

REACTIONS (3)
  - DRUG EXPOSURE DURING PREGNANCY [None]
  - ECTOPIC PREGNANCY [None]
  - GENITAL HAEMORRHAGE [None]
